FAERS Safety Report 17431215 (Version 1)
Quarter: 2020Q1

REPORT INFORMATION
  Report Type: Spontaneous
  Country: RU (occurrence: RU)
  Receive Date: 20200218
  Receipt Date: 20200218
  Transmission Date: 20200409
  Serious: Yes (Hospitalization, Other)
  Sender: FDA-Public Use
  Company Number: RU-ASTRAZENECA-2020SE20819

PATIENT
  Age: 43 Year
  Sex: Female
  Weight: 120 kg

DRUGS (3)
  1. SYMBICORT [Suspect]
     Active Substance: BUDESONIDE\FORMOTEROL FUMARATE DIHYDRATE
     Indication: ASTHMA
     Dosage: 160/4.5 MCG BID,
     Route: 055
     Dates: start: 2009, end: 2019
  2. SYMBICORT [Suspect]
     Active Substance: BUDESONIDE\FORMOTEROL FUMARATE DIHYDRATE
     Indication: ASTHMA
     Dosage: 160/4.5 MCG BID,
     Route: 055
  3. TIOTROPIUM RESPIMAT [Concomitant]
     Active Substance: TIOTROPIUM

REACTIONS (2)
  - Intentional product misuse [Recovered/Resolved]
  - Asthma [Unknown]
